FAERS Safety Report 17887366 (Version 1)
Quarter: 2020Q2

REPORT INFORMATION
  Report Type: Spontaneous
  Country: US (occurrence: US)
  Receive Date: 20200611
  Receipt Date: 20200611
  Transmission Date: 20200714
  Serious: Yes (Other)
  Sender: FDA-Public Use
  Company Number: US-009507513-2006USA003369

PATIENT
  Age: 64 Year
  Sex: Male

DRUGS (6)
  1. KEYTRUDA [Suspect]
     Active Substance: PEMBROLIZUMAB
     Indication: METASTASES TO LUNG
  2. P53 PROTEIN ACTIVATOR (UNSPECIFIED) [Concomitant]
     Indication: BASAL CELL CARCINOMA
  3. P53 PROTEIN ACTIVATOR (UNSPECIFIED) [Concomitant]
     Indication: METASTASES TO LUNG
  4. KEYTRUDA [Suspect]
     Active Substance: PEMBROLIZUMAB
     Indication: BASAL CELL CARCINOMA
  5. SMOOTHENED RECEPTOR INHIBITOR (UNSPECIFIED) [Concomitant]
     Indication: BASAL CELL CARCINOMA
  6. SMOOTHENED RECEPTOR INHIBITOR (UNSPECIFIED) [Concomitant]
     Indication: METASTASES TO LUNG

REACTIONS (2)
  - Pemphigoid [Recovering/Resolving]
  - Product use in unapproved indication [Unknown]
